FAERS Safety Report 8383059-9 (Version None)
Quarter: 2012Q1

REPORT INFORMATION
  Report Type: 
  Country: None (occurrence: None)
  Receive Date: 20120323
  Receipt Date: 20110511
  Transmission Date: 20120608
  Serious: Yes (Hospitalization, Other)
  Sender: FDA-Public Use
  Company Number: 163-21880-11051551

PATIENT
  Age: 92 Year
  Sex: Male

DRUGS (4)
  1. LASIX [Concomitant]
  2. REVLIMID [Suspect]
     Indication: LYMPHOPROLIFERATIVE DISORDER
     Dosage: 5 MG, DAILY FOR 21 DAYS Q 28 DAYS, PO
     Route: 048
     Dates: start: 20100831
  3. BLOOD (BLOOD AND RELATED PRODUCTS) [Concomitant]
  4. COUMADIN [Concomitant]

REACTIONS (2)
  - CARDIAC FAILURE CONGESTIVE [None]
  - PNEUMONIA [None]
